FAERS Safety Report 9141103 (Version 2)
Quarter: 2013Q1

REPORT INFORMATION
  Report Type: Spontaneous
  Country: US (occurrence: US)
  Receive Date: 20130305
  Receipt Date: 20130326
  Transmission Date: 20140127
  Serious: Yes (Other)
  Sender: FDA-Public Use
  Company Number: US-ALLERGAN-1217114US

PATIENT
  Age: 77 Year
  Sex: Male

DRUGS (2)
  1. OZURDEX [Suspect]
     Indication: RETINAL VEIN OCCLUSION
     Dosage: 0.7 MG, SINGLE
     Route: 031
     Dates: start: 20121128, end: 20121128
  2. OZURDEX [Suspect]
     Indication: CYSTOID MACULAR OEDEMA

REACTIONS (1)
  - Vitreous haemorrhage [Not Recovered/Not Resolved]
